FAERS Safety Report 7797470-8 (Version None)
Quarter: 2011Q4

REPORT INFORMATION
  Report Type: 
  Country: None (occurrence: None)
  Receive Date: 20111004
  Receipt Date: 20111004
  Transmission Date: 20120403
  Serious: Yes (Death, Hospitalization)
  Sender: FDA-Public Use
  Company Number: None

PATIENT
  Sex: Male
  Weight: 59.9 kg

DRUGS (2)
  1. CISPLATIN [Suspect]
     Dosage: 95 MG
     Dates: end: 20101006
  2. ETOPOSIDE [Suspect]
     Dosage: 381 MG
     Dates: end: 20101008

REACTIONS (17)
  - CONTUSION [None]
  - PERFORMANCE STATUS DECREASED [None]
  - HAEMOGLOBIN DECREASED [None]
  - FATIGUE [None]
  - FACIAL BONES FRACTURE [None]
  - FALL [None]
  - ASTHENIA [None]
  - EXCORIATION [None]
  - SUBARACHNOID HAEMORRHAGE [None]
  - JAW FRACTURE [None]
  - PLATELET COUNT DECREASED [None]
  - NEOPLASM PROGRESSION [None]
  - DIZZINESS [None]
  - MEMORY IMPAIRMENT [None]
  - LACERATION [None]
  - HAEMORRHAGE [None]
  - HAEMATOMA [None]
